FAERS Safety Report 5994534-6 (Version None)
Quarter: 2008Q4

REPORT INFORMATION
  Report Type: 
  Country: None (occurrence: None)
  Receive Date: 20081212
  Receipt Date: 20081202
  Transmission Date: 20090506
  Serious: Yes (Other)
  Sender: FDA-Public Use
  Company Number: IT-MERCK-0812ITA00004

PATIENT
  Age: 66 Year
  Sex: Female

DRUGS (4)
  1. FOSAMAX [Suspect]
     Indication: OSTEOPOROSIS
     Route: 048
     Dates: start: 19930101, end: 20081201
  2. PREDNISONE [Concomitant]
     Route: 048
  3. HYDROXYCHLOROQUINE SULFATE [Concomitant]
     Route: 048
  4. ESOMEPRAZOLE MAGNESIUM [Concomitant]
     Route: 048

REACTIONS (3)
  - INCORRECT DOSE ADMINISTERED [None]
  - ORAL CAVITY FISTULA [None]
  - OSTEONECROSIS [None]
